FAERS Safety Report 4730745-5 (Version None)
Quarter: 2005Q3

REPORT INFORMATION
  Report Type: 
  Country: None (occurrence: None)
  Receive Date: 20050725
  Receipt Date: 20050318
  Transmission Date: 20060218
  Serious: No
  Sender: FDA-Public Use
  Company Number: USA050393565

PATIENT
  Age: 22 Year
  Sex: Female

DRUGS (2)
  1. STRATTERA [Suspect]
     Indication: ATTENTION DEFICIT/HYPERACTIVITY DISORDER
     Dosage: 80 MG DAY
     Dates: start: 20050101
  2. 5HTP HERBAL SUPPLEMENT [Concomitant]

REACTIONS (2)
  - ANXIETY [None]
  - INITIAL INSOMNIA [None]
